FAERS Safety Report 5624648-1 (Version None)
Quarter: 2008Q1

REPORT INFORMATION
  Report Type: 
  Country: None (occurrence: None)
  Receive Date: 20080213
  Receipt Date: 20080201
  Transmission Date: 20080703
  Serious: Yes (Other)
  Sender: FDA-Public Use
  Company Number: US-ROCHE-545023

PATIENT
  Age: 66 Year
  Sex: Female
  Weight: 60.8 kg

DRUGS (1)
  1. CAPECITABINE [Suspect]
     Indication: BREAST CANCER
     Dosage: THE PATIENT TOOK XELODA 1500 MG TWICE A DAY, ONE WEEK ON, ONE WEEK OFF.
     Route: 065

REACTIONS (2)
  - PALMAR-PLANTAR ERYTHRODYSAESTHESIA SYNDROME [None]
  - SKIN DISCOLOURATION [None]
